FAERS Safety Report 24193146 (Version 2)
Quarter: 2024Q3

REPORT INFORMATION
  Report Type: Spontaneous
  Country: JP (occurrence: JP)
  Receive Date: 20240809
  Receipt Date: 20240830
  Transmission Date: 20241017
  Serious: Yes (Other)
  Sender: GILEAD
  Company Number: JP-GILEAD-2024-0683175

PATIENT
  Age: 65 Year
  Sex: Male

DRUGS (7)
  1. VEKLURY [Suspect]
     Active Substance: REMDESIVIR
     Indication: COVID-19
     Dosage: UNK
     Route: 065
  2. GLOBULIN [Concomitant]
     Indication: COVID-19
     Dosage: 1 G/KG/DAY
     Route: 042
  3. METHYLPREDNISOLONE [Concomitant]
     Active Substance: METHYLPREDNISOLONE
     Indication: COVID-19
     Dosage: 1 G
  4. DOBUTAMINE HYDROCHLORIDE [Concomitant]
     Active Substance: DOBUTAMINE HYDROCHLORIDE
     Dosage: 2.5 UG/KG/MIN
  5. DOBUTAMINE HYDROCHLORIDE [Concomitant]
     Active Substance: DOBUTAMINE HYDROCHLORIDE
     Dosage: UNK
  6. VASOPRESSIN [Concomitant]
     Active Substance: VASOPRESSIN
     Dosage: 2 U/H
  7. NOREPINEPHRINE [Concomitant]
     Active Substance: NOREPINEPHRINE\NOREPINEPHRINE BITARTRATE
     Dosage: 0.2 UG/KG/MIN

REACTIONS (1)
  - Pneumonia bacterial [Unknown]
